FAERS Safety Report 9058971 (Version 1)
Quarter: 2013Q1

REPORT INFORMATION
  Report Type: Spontaneous
  Country: US (occurrence: US)
  Receive Date: 20130211
  Receipt Date: 20130211
  Transmission Date: 20140127
  Serious: No
  Sender: FDA-Public Use
  Company Number: US-BRISTOL-MYERS SQUIBB COMPANY-16473829

PATIENT
  Age: 47 Year
  Sex: Female

DRUGS (10)
  1. GLUCOPHAGE [Suspect]
  2. PREMPRO [Concomitant]
     Dosage: 1 DF = 0.3/1.5 MG
     Route: 048
  3. NEURONTIN [Concomitant]
     Dosage: 1/2 TAB BID DAY2,1PO DAY3,1 PO BID DAY4
     Route: 048
  4. CARVEDILOL [Concomitant]
  5. LORATADINE [Concomitant]
  6. IBUPROFEN [Concomitant]
  7. DIGOXIN [Concomitant]
  8. SIMVASTATIN [Concomitant]
  9. GLIPIZIDE [Concomitant]
  10. OMEPRAZOLE [Concomitant]

REACTIONS (1)
  - Hypersensitivity [Unknown]
